FAERS Safety Report 9452408 (Version 1)
Quarter: 2013Q3

REPORT INFORMATION
  Report Type: Spontaneous
  Country: FR (occurrence: FR)
  Receive Date: 20130812
  Receipt Date: 20130812
  Transmission Date: 20140515
  Serious: Yes (Other)
  Sender: FDA-Public Use
  Company Number: FR-ROCHE-1259705

PATIENT
  Age: 65 Year
  Sex: Female

DRUGS (3)
  1. RIVOTRIL [Suspect]
     Indication: EPILEPSY
     Route: 048
  2. DEPAKINE [Suspect]
     Indication: EPILEPSY
     Route: 048
  3. VIMPAT [Suspect]
     Indication: EPILEPSY
     Route: 048

REACTIONS (1)
  - Myelodysplastic syndrome [Not Recovered/Not Resolved]
